FAERS Safety Report 11775129 (Version 11)
Quarter: 2016Q3

REPORT INFORMATION
  Report Type: Spontaneous
  Country: CA (occurrence: CA)
  Receive Date: 20151124
  Receipt Date: 20160912
  Transmission Date: 20161109
  Serious: Yes (Hospitalization, Other)
  Sender: FDA-Public Use
  Company Number: CA-009507513-1510CAN004449

PATIENT
  Age: 68 Year
  Sex: Male
  Weight: 87 kg

DRUGS (7)
  1. KEYTRUDA [Suspect]
     Active Substance: PEMBROLIZUMAB
     Indication: METASTATIC MALIGNANT MELANOMA
     Dosage: 186 MG, Q3W
     Route: 042
     Dates: start: 20150918, end: 2016
  2. KEYTRUDA [Suspect]
     Active Substance: PEMBROLIZUMAB
     Dosage: 176 MG, Q3W
     Route: 042
     Dates: start: 2016, end: 2016
  3. KEYTRUDA [Suspect]
     Active Substance: PEMBROLIZUMAB
     Dosage: 174 MG, Q3W
     Route: 042
     Dates: start: 20160816
  4. KEYTRUDA [Suspect]
     Active Substance: PEMBROLIZUMAB
     Dosage: 172 MG, Q3W
     Route: 042
     Dates: start: 2016, end: 2016
  5. KEYTRUDA [Suspect]
     Active Substance: PEMBROLIZUMAB
     Dosage: 164 MG, Q3W
     Route: 042
     Dates: start: 2016, end: 2016
  6. KEYTRUDA [Suspect]
     Active Substance: PEMBROLIZUMAB
     Dosage: 170 MG, Q3W
     Route: 042
     Dates: start: 201605, end: 201606
  7. KEYTRUDA [Suspect]
     Active Substance: PEMBROLIZUMAB
     Dosage: 173 MG, Q3W
     Route: 042
     Dates: start: 201606, end: 2016

REACTIONS (13)
  - Pulmonary toxicity [Unknown]
  - Skin lesion [Unknown]
  - Erythema [Unknown]
  - Pruritus [Unknown]
  - Depression [Unknown]
  - Fatigue [Unknown]
  - Localised infection [Recovering/Resolving]
  - Weight increased [Unknown]
  - Cough [Unknown]
  - Anxiety [Unknown]
  - Herpes zoster [Unknown]
  - Adverse event [Unknown]
  - Dyspnoea [Unknown]

NARRATIVE: CASE EVENT DATE: 2015
